FAERS Safety Report 10240209 (Version 1)
Quarter: 2014Q2

REPORT INFORMATION
  Report Type: Spontaneous
  Country: US (occurrence: JP)
  Receive Date: 20140617
  Receipt Date: 20140617
  Transmission Date: 20141212
  Serious: Yes (Death)
  Sender: FDA-Public Use
  Company Number: 2014SP000342

PATIENT
  Age: 32 Year
  Sex: Female
  Weight: 42.5 kg

DRUGS (3)
  1. METHOTREXATE [Suspect]
     Indication: MENINGITIS
     Route: 028
     Dates: start: 20131129
  2. METHOTREXATE [Suspect]
     Indication: MENINGITIS
     Route: 028
     Dates: start: 20131206
  3. METHOTREXATE [Suspect]
     Indication: MENINGITIS
     Route: 028
     Dates: end: 20140129

REACTIONS (8)
  - Disease progression [Fatal]
  - Gastric cancer [Fatal]
  - Somnolence [Unknown]
  - Memory impairment [Unknown]
  - Altered state of consciousness [Unknown]
  - Cognitive disorder [Unknown]
  - Jaundice cholestatic [Unknown]
  - Visual acuity reduced [Recovering/Resolving]
